FAERS Safety Report 7382219-3 (Version None)
Quarter: 2011Q1

REPORT INFORMATION
  Report Type: 
  Country: None (occurrence: None)
  Receive Date: 20110329
  Receipt Date: 20110106
  Transmission Date: 20110831
  Serious: No
  Sender: FDA-Public Use
  Company Number: US-BAYER-2011-002272

PATIENT
  Sex: Female

DRUGS (2)
  1. BEYAZ [Suspect]
     Dosage: UNK
     Dates: start: 20101201
  2. WELLBUTRIN [Concomitant]
     Indication: DEPRESSION
     Dosage: 150 MG, QD

REACTIONS (3)
  - HEADACHE [None]
  - NAUSEA [None]
  - BREAST TENDERNESS [None]
